FAERS Safety Report 15820244 (Version 2)
Quarter: 2019Q2

REPORT INFORMATION
  Report Type: Spontaneous
  Country: US (occurrence: US)
  Receive Date: 20190114
  Receipt Date: 20190411
  Transmission Date: 20190711
  Serious: Yes (Death, Other)
  Sender: FDA-Public Use
  Company Number: US-JNJFOC-20190107919

PATIENT
  Sex: Female
  Weight: 70.1 kg

DRUGS (1)
  1. JOHNSONS BABY BABY POWDER UNSPECIFIED (ZINC OXIDE) [Suspect]
     Active Substance: ZINC OXIDE
     Indication: PRODUCT USED FOR UNKNOWN INDICATION
     Route: 061

REACTIONS (8)
  - Ovarian cancer stage IV [Fatal]
  - Pyrexia [None]
  - Pleural effusion [None]
  - Renal failure [None]
  - Diarrhoea [None]
  - Staphylococcal sepsis [None]
  - Clostridium test positive [None]
  - Faeces discoloured [None]
